FAERS Safety Report 12935607 (Version 1)
Quarter: 2016Q4

REPORT INFORMATION
  Report Type: Report from Study
  Country: US (occurrence: US)
  Receive Date: 20161114
  Receipt Date: 20161114
  Transmission Date: 20170207
  Serious: Yes (Hospitalization, Other)
  Sender: FDA-Public Use
  Company Number: US-AMGEN-USASL2016156318

PATIENT
  Age: 61 Year
  Sex: Male

DRUGS (2)
  1. ENBREL [Suspect]
     Active Substance: ETANERCEPT
     Indication: RHEUMATOID ARTHRITIS
     Dosage: 50 MG, QWK
     Route: 065
     Dates: start: 2001
  2. TRIHEXYPHENIDYL [Suspect]
     Active Substance: TRIHEXYPHENIDYL
     Indication: PARKINSON^S DISEASE
     Dosage: 2 MG, 6 TABLETS DAILY
     Route: 065
     Dates: start: 2016

REACTIONS (10)
  - Osteomyelitis [Unknown]
  - Constipation [Unknown]
  - Foot fracture [Unknown]
  - Feeling abnormal [Unknown]
  - Parkinson^s disease [Unknown]
  - Unevaluable event [Unknown]
  - Ankle operation [Unknown]
  - Memory impairment [Unknown]
  - Arthropathy [Unknown]
  - Dry mouth [Unknown]

NARRATIVE: CASE EVENT DATE: 2013
